FAERS Safety Report 16042301 (Version 1)
Quarter: 2019Q1

REPORT INFORMATION
  Report Type: Spontaneous
  Country: DE (occurrence: DE)
  Receive Date: 20190306
  Receipt Date: 20190306
  Transmission Date: 20190418
  Serious: Yes (Hospitalization, Other)
  Sender: FDA-Public Use
  Company Number: DE-UCBSA-2019007893

PATIENT
  Age: 77 Year
  Sex: Male

DRUGS (4)
  1. KEPPRA [Interacting]
     Active Substance: LEVETIRACETAM
     Indication: POST STROKE EPILEPSY
     Dosage: 750 MG, 2X/DAY (BID)
  2. VIMPAT [Suspect]
     Active Substance: LACOSAMIDE
     Indication: POST STROKE EPILEPSY
     Dosage: 100 MG, 2X/DAY (BID)
  3. ACETYLSALICYLIC ACID [Concomitant]
     Active Substance: ASPIRIN
     Indication: PRODUCT USED FOR UNKNOWN INDICATION
     Dosage: UNK
  4. ALDACTONE [Concomitant]
     Active Substance: SPIRONOLACTONE
     Indication: PRODUCT USED FOR UNKNOWN INDICATION
     Dosage: UNK

REACTIONS (12)
  - Transaminases abnormal [Unknown]
  - Hepatic failure [Recovering/Resolving]
  - Nausea [Unknown]
  - General physical condition decreased [Unknown]
  - Abdominal tenderness [Unknown]
  - Drug interaction [Unknown]
  - Thrombocytopenia [Unknown]
  - Abdominal pain lower [Unknown]
  - Mucosal dryness [Unknown]
  - Asthenia [Unknown]
  - Drug-induced liver injury [Recovering/Resolving]
  - Decreased appetite [Unknown]

NARRATIVE: CASE EVENT DATE: 201901
